FAERS Safety Report 16427569 (Version 3)
Quarter: 2019Q3

REPORT INFORMATION
  Report Type: Spontaneous
  Country: BE (occurrence: BE)
  Receive Date: 20190613
  Receipt Date: 20190731
  Transmission Date: 20191004
  Serious: Yes (Other)
  Sender: FDA-Public Use
  Company Number: BE-JNJFOC-20190609695

PATIENT
  Age: 40 Year
  Sex: Male
  Weight: 104 kg

DRUGS (3)
  1. RETROVIR [Concomitant]
     Active Substance: ZIDOVUDINE
  2. TIVICAY [Concomitant]
     Active Substance: DOLUTEGRAVIR SODIUM
  3. TREMFYA [Suspect]
     Active Substance: GUSELKUMAB
     Indication: PSORIASIS
     Route: 065

REACTIONS (3)
  - HIV infection [Unknown]
  - Drug ineffective [Unknown]
  - Psoriasis [Unknown]

NARRATIVE: CASE EVENT DATE: 20181204
